FAERS Safety Report 13975645 (Version 1)
Quarter: 2017Q3

REPORT INFORMATION
  Report Type: Spontaneous
  Country: CH (occurrence: CH)
  Receive Date: 20170915
  Receipt Date: 20170915
  Transmission Date: 20171128
  Serious: Yes (Other)
  Sender: FDA-Public Use
  Company Number: CH-ZAMBON-201701673CHE

PATIENT
  Sex: Male

DRUGS (1)
  1. XADAGO [Suspect]
     Active Substance: SAFINAMIDE MESYLATE
     Indication: PARKINSON^S DISEASE
     Dosage: UNK
     Route: 048

REACTIONS (3)
  - Photosensitivity reaction [Unknown]
  - Off label use [Unknown]
  - Sunburn [Unknown]
